FAERS Safety Report 11895602 (Version 1)
Quarter: 2016Q1

REPORT INFORMATION
  Report Type: Spontaneous
  Country: DE (occurrence: DE)
  Receive Date: 20160107
  Receipt Date: 20160107
  Transmission Date: 20160526
  Serious: Yes (Other)
  Sender: FDA-Public Use
  Company Number: DE-PFIZER INC-2016001752

PATIENT
  Sex: Male

DRUGS (1)
  1. INSPRA [Suspect]
     Active Substance: EPLERENONE

REACTIONS (1)
  - Abscess of salivary gland [Unknown]
